FAERS Safety Report 11777351 (Version 4)
Quarter: 2017Q4

REPORT INFORMATION
  Report Type: Report from Study
  Country: CZ (occurrence: CZ)
  Receive Date: 20151125
  Receipt Date: 20171018
  Transmission Date: 20180320
  Serious: Yes (Hospitalization)
  Sender: FDA-Public Use
  Company Number: CZ-UCBSA-2015037112

PATIENT
  Age: 68 Year
  Sex: Female
  Weight: 90 kg

DRUGS (12)
  1. GLUCOPHAGE [Concomitant]
     Active Substance: METFORMIN HYDROCHLORIDE
     Indication: TYPE 2 DIABETES MELLITUS
     Dosage: 1000 MG, 2X/DAY (BID)
     Route: 048
     Dates: start: 2005
  2. TRITACE [Concomitant]
     Active Substance: RAMIPRIL
     Indication: HYPERTENSION
     Dosage: 10 MG, ONCE DAILY (QD)
     Route: 048
     Dates: start: 201501
  3. CERTOLIZUMAB PEGOL [Suspect]
     Active Substance: CERTOLIZUMAB PEGOL
     Indication: PSORIASIS
     Dosage: 400 MG, EV 2 WEEKS(QOW)
     Route: 058
     Dates: start: 20151008, end: 20160131
  4. TORVACARD [Concomitant]
     Active Substance: ATORVASTATIN CALCIUM
     Indication: DYSLIPIDAEMIA
     Dosage: 20 MG, ONCE DAILY (QD)
     Route: 048
     Dates: start: 2014
  5. MUCOSOLVAN [Concomitant]
     Active Substance: AMBROXOL HYDROCHLORIDE
     Indication: UPPER RESPIRATORY TRACT INFECTION
     Dosage: 75 MG, ONCE DAILY (QD), 1-0-0
     Route: 048
     Dates: start: 20151113, end: 20151115
  6. ISOPHANE INSULIN [Concomitant]
     Active Substance: INSULIN NOS
     Indication: TYPE 2 DIABETES MELLITUS
     Dosage: 1 UNIT, (0-0-18), ONCE DAILY (QD)
     Route: 058
     Dates: start: 2010, end: 20151115
  7. ACETYLSALICYLIC ACID [Concomitant]
     Active Substance: ASPIRIN
     Indication: PROPHYLAXIS
     Dosage: 100 MG, ONCE DAILY (QD)
     Route: 048
     Dates: start: 200501
  8. LETROX [Concomitant]
     Active Substance: LEVOTHYROXINE SODIUM
     Indication: HYPOTHYROIDISM
     Dosage: 150 MG, ONCE DAILY (QD)
     Route: 048
     Dates: start: 2010
  9. ACTRAPID [Concomitant]
     Active Substance: INSULIN HUMAN
     Indication: TYPE 2 DIABETES MELLITUS
     Dosage: 1 UNIT (16-16-16-0), 3X/DAY (TID)
     Route: 058
     Dates: start: 2010, end: 20151115
  10. CERTOLIZUMAB PEGOL [Suspect]
     Active Substance: CERTOLIZUMAB PEGOL
     Dosage: 200 MG, EV 2 WEEKS(QOW)
     Dates: start: 20160201
  11. ACIDUM ACETYLSALICUM [Concomitant]
     Indication: HAEMORRHAGE PROPHYLAXIS
     Dosage: 100 MG, ONCE DAILY (QD)
     Route: 048
     Dates: start: 201212
  12. NOLPAZA [Concomitant]
     Active Substance: PANTOPRAZOLE SODIUM
     Indication: ULCER
     Dosage: 40 MG, ONCE DAILY (QD)
     Route: 048
     Dates: start: 201412

REACTIONS (1)
  - Pneumonia [Recovered/Resolved]

NARRATIVE: CASE EVENT DATE: 20151116
